FAERS Safety Report 13561739 (Version 2)
Quarter: 2018Q3

REPORT INFORMATION
  Report Type: Spontaneous
  Country: DE (occurrence: DE)
  Receive Date: 20170518
  Receipt Date: 20180918
  Transmission Date: 20181010
  Serious: Yes (Other)
  Sender: FDA-Public Use
  Company Number: DE-BAYER-2016-206487

PATIENT
  Age: 35 Year
  Sex: Female
  Weight: 51.8 kg

DRUGS (2)
  1. JAYDESS [Suspect]
     Active Substance: LEVONORGESTREL
     Indication: CONTRACEPTION
     Dosage: 14 MCG/24HR, CONT
     Route: 015
     Dates: start: 20150519
  2. SERTRALINE [Concomitant]
     Active Substance: SERTRALINE HYDROCHLORIDE
     Indication: DEPRESSION

REACTIONS (9)
  - Amenorrhoea [None]
  - Drug ineffective [None]
  - Abdominal pain lower [None]
  - Premature delivery [None]
  - Pregnancy with contraceptive device [None]
  - Placenta praevia [None]
  - Haemorrhage in pregnancy [None]
  - Device dislocation [None]
  - Placenta praevia haemorrhage [None]

NARRATIVE: CASE EVENT DATE: 2016
